FAERS Safety Report 9691041 (Version 1)
Quarter: 2013Q4

REPORT INFORMATION
  Report Type: Spontaneous
  Country: DE (occurrence: DE)
  Receive Date: 20131115
  Receipt Date: 20131115
  Transmission Date: 20140711
  Serious: Yes (Hospitalization)
  Sender: FDA-Public Use
  Company Number: DE-ELI_LILLY_AND_COMPANY-DE201311001983

PATIENT
  Age: 68 Year
  Sex: Female
  Weight: 70 kg

DRUGS (10)
  1. PANTOPRAZOL [Concomitant]
     Indication: GASTROINTESTINAL DISORDER THERAPY
     Dosage: 40 MG, QD
     Route: 065
  2. ASS [Concomitant]
     Indication: ANALGESIC THERAPY
     Dosage: 100 MG, QD
     Route: 065
     Dates: start: 2006
  3. HCT HEXAL [Concomitant]
     Indication: DIURETIC THERAPY
     Dosage: 12.5 MG, QD
     Route: 065
     Dates: start: 2011, end: 20130709
  4. HCT HEXAL [Concomitant]
     Dosage: 25 MG, QD
     Route: 065
     Dates: start: 20130710
  5. SIMVASTATIN [Concomitant]
     Indication: DYSLIPIDAEMIA
     Dosage: 40 MG, QD
     Route: 065
  6. EUTHYROX [Concomitant]
     Indication: THYROID THERAPY
     Dosage: 112.5 MG, QD
     Route: 065
     Dates: start: 2011
  7. DIPIPERON [Concomitant]
     Indication: PRODUCT USED FOR UNKNOWN INDICATION
     Dosage: 40 MG, QD
     Route: 065
     Dates: start: 2011
  8. TRAMAL [Concomitant]
     Indication: ANALGESIC THERAPY
     Dosage: 200 MG, QD
     Route: 065
     Dates: start: 2011
  9. CYMBALTA [Suspect]
     Indication: DEPRESSION
     Dosage: 90 MG, QD
     Route: 048
     Dates: start: 20130425, end: 20130610
  10. CONCOR [Concomitant]
     Indication: ADRENAL BLOCKADE THERAPY
     Dosage: 5 MG, QD
     Route: 065
     Dates: start: 2006

REACTIONS (2)
  - Oedema peripheral [Recovering/Resolving]
  - Pain in extremity [Recovering/Resolving]
